FAERS Safety Report 22147433 (Version 2)
Quarter: 2023Q2

REPORT INFORMATION
  Report Type: Report from Study
  Country: US (occurrence: US)
  Receive Date: 20230328
  Receipt Date: 20230525
  Transmission Date: 20230722
  Serious: Yes (Other)
  Sender: FDA-Public Use
  Company Number: US-002147023-NVSC2023US066570

PATIENT
  Sex: Male

DRUGS (2)
  1. ENTRESTO [Suspect]
     Active Substance: SACUBITRIL\VALSARTAN
     Indication: Product used for unknown indication
     Dosage: 100 MG, BID (49/51 MG: 100 MG: 48.6 MG SACUBITRIL AND 51.4 MG VALSARTAN)
     Route: 048
  2. ENTRESTO [Suspect]
     Active Substance: SACUBITRIL\VALSARTAN
     Dosage: 200 MG, BID (97/103 MG: 200 MG: 97.2 MG SACUBITRIL AND 102.8 MG VALSARTAN)
     Route: 048

REACTIONS (5)
  - Loss of consciousness [Unknown]
  - Hypertension [Unknown]
  - Heart rate increased [Unknown]
  - Fall [Unknown]
  - Cough [Recovering/Resolving]
